FAERS Safety Report 5671639-0 (Version None)
Quarter: 2008Q2

REPORT INFORMATION
  Report Type: 
  Country: None (occurrence: None)
  Receive Date: 20080228
  Receipt Date: 20071130
  Transmission Date: 20081010
  Serious: Yes (Hospitalization)
  Sender: FDA-Public Use
  Company Number: PHEH2007US15400

PATIENT
  Sex: Male

DRUGS (5)
  1. TASIGNA [Suspect]
     Indication: CHRONIC MYELOID LEUKAEMIA
     Dosage: 400 MG, BID, ORAL; 200 MG, BID, ORAL
     Route: 048
     Dates: start: 20071127, end: 20071130
  2. TASIGNA [Suspect]
     Indication: CHRONIC MYELOID LEUKAEMIA
     Dosage: 400 MG, BID, ORAL; 200 MG, BID, ORAL
     Route: 048
     Dates: start: 20071201
  3. COZAAR [Concomitant]
  4. POTASSIUM CHLORIDE [Concomitant]
  5. PROZAC [Concomitant]

REACTIONS (3)
  - PRURITUS [None]
  - RASH [None]
  - URTICARIA [None]
